FAERS Safety Report 24535776 (Version 1)
Quarter: 2024Q4

REPORT INFORMATION
  Report Type: Spontaneous
  Country: US (occurrence: US)
  Receive Date: 20241022
  Receipt Date: 20241022
  Transmission Date: 20250115
  Serious: Yes (Life-Threatening, Hospitalization, Other)
  Sender: GLAND PHARMA LTD
  Company Number: US-GLANDPHARMA-US-2024GLNLIT00882

PATIENT
  Age: 31 Year
  Sex: Female

DRUGS (1)
  1. HEPARIN SODIUM [Suspect]
     Active Substance: HEPARIN SODIUM
     Indication: Jugular vein thrombosis
     Route: 065

REACTIONS (2)
  - Retroperitoneal haematoma [Recovered/Resolved]
  - Cardiac arrest [Recovered/Resolved]
